FAERS Safety Report 4474035-7 (Version None)
Quarter: 2004Q4

REPORT INFORMATION
  Report Type: 
  Country: None (occurrence: None)
  Receive Date: 20041008
  Receipt Date: 20040922
  Transmission Date: 20050328
  Serious: Yes (Other)
  Sender: FDA-Public Use
  Company Number: USA040979034

PATIENT
  Age: 85 Year
  Sex: Female

DRUGS (1)
  1. FORTEO [Suspect]
     Dates: start: 20040101, end: 20040101

REACTIONS (3)
  - BLOOD CALCIUM INCREASED [None]
  - CONDITION AGGRAVATED [None]
  - RENAL FAILURE [None]
